FAERS Safety Report 11011065 (Version 4)
Quarter: 2022Q1

REPORT INFORMATION
  Report Type: Report from Study
  Country: US (occurrence: US)
  Receive Date: 20150410
  Receipt Date: 20220224
  Transmission Date: 20220423
  Serious: Yes (Disabling, Other)
  Sender: FDA-Public Use
  Company Number: PHHO2015US005633

PATIENT
  Age: 53 Year
  Sex: Female
  Weight: 89.8 kg

DRUGS (3)
  1. GLEEVEC [Suspect]
     Active Substance: IMATINIB MESYLATE
     Indication: Gastrointestinal stromal tumour
     Dosage: 400 MG, QD
     Route: 048
     Dates: start: 20150102, end: 20150403
  2. RAF-265 [Suspect]
     Active Substance: RAF-265
     Indication: Gastrointestinal stromal tumour
     Dosage: 45 MG, BID
     Route: 048
     Dates: start: 20150102, end: 20150403
  3. RAF-265 [Suspect]
     Active Substance: RAF-265
     Dosage: (30 MG QAM AND 45 MG QPM) QD
     Route: 048
     Dates: start: 20150409

REACTIONS (1)
  - Dropped head syndrome [Recovered/Resolved]

NARRATIVE: CASE EVENT DATE: 20150402
